FAERS Safety Report 11129782 (Version 4)
Quarter: 2015Q3

REPORT INFORMATION
  Report Type: Report from Study
  Country: US (occurrence: US)
  Receive Date: 20150521
  Receipt Date: 20150707
  Transmission Date: 20151125
  Serious: Yes (Hospitalization, Other)
  Sender: FDA-Public Use
  Company Number: US-GILEAD-2015-0154133

PATIENT
  Age: 78 Year
  Sex: Male

DRUGS (1)
  1. IDELALISIB [Suspect]
     Active Substance: IDELALISIB
     Indication: CHRONIC LYMPHOCYTIC LEUKAEMIA
     Dosage: 150 MG, BID
     Route: 048
     Dates: start: 20150226, end: 20150511

REACTIONS (7)
  - Respiratory tract infection [Unknown]
  - Wheezing [Unknown]
  - Cardiac disorder [Unknown]
  - Blood sodium decreased [Unknown]
  - Cough [Unknown]
  - Total lung capacity decreased [Unknown]
  - Dyspnoea [Unknown]
